FAERS Safety Report 6724119-5 (Version None)
Quarter: 2010Q2

REPORT INFORMATION
  Report Type: 
  Country: None (occurrence: None)
  Receive Date: 20100513
  Receipt Date: 20100504
  Transmission Date: 20101027
  Serious: Yes (Other)
  Sender: FDA-Public Use
  Company Number: US-ROCHE-702192

PATIENT
  Sex: Female

DRUGS (4)
  1. AVASTIN [Suspect]
     Route: 042
     Dates: start: 20090101, end: 20091101
  2. AVASTIN [Suspect]
     Route: 042
     Dates: start: 20100401
  3. FOLFIRI REGIMEN [Suspect]
     Route: 065
     Dates: start: 20090101, end: 20091101
  4. FOLFIRI REGIMEN [Suspect]
     Route: 065
     Dates: start: 20100401

REACTIONS (4)
  - ABDOMINAL PAIN [None]
  - HEPATIC NEOPLASM [None]
  - PAIN [None]
  - RECTAL HAEMORRHAGE [None]
